FAERS Safety Report 14668343 (Version 1)
Quarter: 2018Q1

REPORT INFORMATION
  Report Type: Report from Study
  Country: None (occurrence: US)
  Receive Date: 20180322
  Receipt Date: 20180322
  Transmission Date: 20180509
  Serious: Yes (Other)
  Sender: FDA-Public Use
  Company Number: US-ABBVIE-18K-163-2286956-00

PATIENT
  Age: 52 Year
  Sex: Female
  Weight: 93.98 kg

DRUGS (5)
  1. FOLIC ACID. [Concomitant]
     Active Substance: FOLIC ACID
     Indication: ARTHRITIS
  2. PREDNISONE. [Concomitant]
     Active Substance: PREDNISONE
     Indication: ARTHRITIS
  3. HUMIRA [Suspect]
     Active Substance: ADALIMUMAB
     Route: 058
     Dates: start: 201802, end: 20180227
  4. HUMIRA [Suspect]
     Active Substance: ADALIMUMAB
     Indication: PSORIATIC ARTHROPATHY
     Route: 058
     Dates: start: 2016, end: 201801
  5. MELOXICAM. [Concomitant]
     Active Substance: MELOXICAM
     Indication: ARTHRITIS

REACTIONS (4)
  - Genital haemorrhage [Recovering/Resolving]
  - Vaginal discharge [Recovering/Resolving]
  - Vaginal odour [Recovering/Resolving]
  - Post procedural infection [Recovering/Resolving]

NARRATIVE: CASE EVENT DATE: 201711
